FAERS Safety Report 18328918 (Version 1)
Quarter: 2020Q3

REPORT INFORMATION
  Report Type: Spontaneous
  Country: GB (occurrence: GB)
  Receive Date: 20200930
  Receipt Date: 20200930
  Transmission Date: 20201103
  Serious: Yes (Other)
  Sender: FDA-Public Use
  Company Number: GB-MYLANLABS-2020M1079575

PATIENT
  Age: 68 Year
  Sex: Male

DRUGS (4)
  1. GOSERELINUM [Concomitant]
     Active Substance: GOSERELIN
     Dosage: UNK
     Route: 065
  2. TAMSULOSIN ZENTIVA [Interacting]
     Active Substance: TAMSULOSIN
     Indication: PROSTATE CANCER
     Dosage: 400 MICROGRAM, QD
     Route: 048
     Dates: start: 20200906
  3. SOLIFENACIN [Interacting]
     Active Substance: SOLIFENACIN
     Indication: PROSTATE CANCER
     Dosage: UNK
     Route: 065
     Dates: start: 20200906
  4. AMLODIPINE [Suspect]
     Active Substance: AMLODIPINE BESYLATE
     Indication: PRODUCT USED FOR UNKNOWN INDICATION
     Dosage: UNK
     Route: 048

REACTIONS (7)
  - Dyspnoea [Not Recovered/Not Resolved]
  - Blood pressure increased [Unknown]
  - Hypertensive crisis [Not Recovered/Not Resolved]
  - Migraine [Not Recovered/Not Resolved]
  - Blood pressure fluctuation [Not Recovered/Not Resolved]
  - Headache [Not Recovered/Not Resolved]
  - Potentiating drug interaction [Recovered/Resolved]
